FAERS Safety Report 20091087 (Version 1)
Quarter: 2021Q4

REPORT INFORMATION
  Report Type: Spontaneous
  Country: IT (occurrence: IT)
  Receive Date: 20211119
  Receipt Date: 20211119
  Transmission Date: 20220303
  Serious: Yes (Other)
  Sender: FDA-Public Use
  Company Number: IT-AMGEN-ITASP2021132430

PATIENT
  Age: 3 Year
  Sex: Female

DRUGS (4)
  1. ADALIMUMAB [Suspect]
     Active Substance: ADALIMUMAB
     Indication: Blau syndrome
     Dosage: UNK
  2. ADALIMUMAB [Suspect]
     Active Substance: ADALIMUMAB
     Dosage: UNK
     Route: 065
  3. NAPROXEN [Concomitant]
     Active Substance: NAPROXEN
     Dosage: UNK
  4. METHOTREXATE [Concomitant]
     Active Substance: METHOTREXATE
     Dosage: UNK

REACTIONS (8)
  - Iris adhesions [Unknown]
  - Off label use [Unknown]
  - Lenticular opacities [Unknown]
  - Condition aggravated [Unknown]
  - Iridocyclitis [Not Recovered/Not Resolved]
  - Cataract nuclear [Unknown]
  - Keratopathy [Unknown]
  - Lenticular pigmentation [Unknown]
